FAERS Safety Report 10196556 (Version 1)
Quarter: 2014Q2

REPORT INFORMATION
  Report Type: Spontaneous
  Country: US (occurrence: US)
  Receive Date: 20140527
  Receipt Date: 20140527
  Transmission Date: 20141212
  Serious: No
  Sender: FDA-Public Use
  Company Number: US-PFIZER INC-2014141948

PATIENT
  Age: 76 Year
  Sex: Male
  Weight: 85.3 kg

DRUGS (7)
  1. GABAPENTIN [Suspect]
     Indication: NEUROPATHY PERIPHERAL
     Dosage: 400 MG, UNK
     Dates: start: 201405, end: 201405
  2. VITAMIN B6 [Concomitant]
     Dosage: 200 MG, 1X/DAY
     Dates: start: 1997
  3. XANAX [Concomitant]
     Dosage: UNK
  4. NEURONTIN [Concomitant]
     Indication: NEUROPATHY PERIPHERAL
     Dosage: 600 MG, 6X/DAY
     Route: 048
     Dates: start: 2014, end: 201405
  5. GABAPENTIN [Concomitant]
     Indication: NEUROPATHY PERIPHERAL
     Dosage: UNK
     Dates: start: 201405, end: 201405
  6. GABAPENTIN [Concomitant]
     Indication: NEUROPATHY PERIPHERAL
     Dosage: UNK
     Dates: start: 201405, end: 201405
  7. GABAPENTIN [Concomitant]
     Indication: NEUROPATHY PERIPHERAL
     Dosage: UNK
     Dates: start: 201405, end: 201405

REACTIONS (4)
  - Drug ineffective [Unknown]
  - Limb discomfort [Unknown]
  - Vision blurred [Unknown]
  - Pain in extremity [Unknown]
